FAERS Safety Report 19862835 (Version 1)
Quarter: 2021Q3

REPORT INFORMATION
  Report Type: Report from Study
  Country: CA (occurrence: CA)
  Receive Date: 20210921
  Receipt Date: 20210921
  Transmission Date: 20211014
  Serious: Yes (Other)
  Sender: FDA-Public Use
  Company Number: CA-PFIZER INC-202101190891

PATIENT
  Age: 45 Year
  Sex: Male

DRUGS (15)
  1. COSENTYX [Suspect]
     Active Substance: SECUKINUMAB
     Indication: ANKYLOSING SPONDYLITIS
     Dosage: 150 MG, WEEKLY
     Route: 058
  2. REMICADE [Concomitant]
     Active Substance: INFLIXIMAB
     Route: 065
  3. PREDNISONE. [Concomitant]
     Active Substance: PREDNISONE
     Route: 065
  4. XELJANZ [Suspect]
     Active Substance: TOFACITINIB CITRATE
     Route: 065
  5. IBUPROFEN. [Concomitant]
     Active Substance: IBUPROFEN
     Route: 065
  6. COSENTYX [Suspect]
     Active Substance: SECUKINUMAB
     Dosage: 150 MG, MONTHLY
     Route: 058
  7. CELEBREX [Concomitant]
     Active Substance: CELECOXIB
     Route: 065
  8. CYCLOBENZAPRINE. [Concomitant]
     Active Substance: CYCLOBENZAPRINE
     Route: 065
  9. COSENTYX [Suspect]
     Active Substance: SECUKINUMAB
     Dosage: UNK
     Route: 058
  10. HUMIRA [Concomitant]
     Active Substance: ADALIMUMAB
     Route: 065
  11. METFORMIN [Concomitant]
     Active Substance: METFORMIN HYDROCHLORIDE
     Route: 065
  12. NAPROXEN. [Concomitant]
     Active Substance: NAPROXEN
     Route: 065
  13. DICLOFENAC [Concomitant]
     Active Substance: DICLOFENAC
     Route: 061
  14. NAPROXEN SODIUM. [Concomitant]
     Active Substance: NAPROXEN SODIUM
     Route: 065
  15. DESOXIMETASONE. [Concomitant]
     Active Substance: DESOXIMETASONE
     Route: 058

REACTIONS (8)
  - Psoriasis [Not Recovered/Not Resolved]
  - Drug ineffective [Not Recovered/Not Resolved]
  - Erythema [Not Recovered/Not Resolved]
  - Skin exfoliation [Not Recovered/Not Resolved]
  - Skin plaque [Not Recovered/Not Resolved]
  - Pain [Not Recovered/Not Resolved]
  - Blister [Not Recovered/Not Resolved]
  - Pustular psoriasis [Not Recovered/Not Resolved]
